FAERS Safety Report 9976725 (Version 1)
Quarter: 2014Q1

REPORT INFORMATION
  Report Type: Report from Study
  Country: US (occurrence: US)
  Receive Date: 20140306
  Receipt Date: 20140306
  Transmission Date: 20141002
  Serious: No
  Sender: FDA-Public Use
  Company Number: US-ABBVIE-13P-163-1164398-00

PATIENT
  Sex: Male
  Weight: 66.74 kg

DRUGS (5)
  1. HUMIRA [Suspect]
     Indication: ANKYLOSING SPONDYLITIS
     Dates: start: 20130919
  2. OMEPRAZOLE [Concomitant]
     Indication: GASTROINTESTINAL PAIN
  3. OMEPRAZOLE [Concomitant]
     Indication: NAUSEA
  4. ZYRTEC [Concomitant]
     Indication: SEASONAL ALLERGY
  5. ZYRTEC [Concomitant]
     Indication: URTICARIA

REACTIONS (2)
  - Arthralgia [Not Recovered/Not Resolved]
  - Drug ineffective [Not Recovered/Not Resolved]
